FAERS Safety Report 13259794 (Version 1)
Quarter: 2017Q1

REPORT INFORMATION
  Report Type: Spontaneous
  Country: US (occurrence: US)
  Receive Date: 20170221
  Receipt Date: 20170221
  Transmission Date: 20170428
  Serious: Yes (Hospitalization)
  Sender: FDA-Public Use
  Company Number: None

PATIENT
  Age: 61 Year
  Sex: Female

DRUGS (6)
  1. INSULIN ASPART [Concomitant]
     Active Substance: INSULIN ASPART
  2. VANCOMYCIN HCL [Suspect]
     Active Substance: VANCOMYCIN HYDROCHLORIDE
     Indication: SEPSIS
     Dosage: ?          OTHER FREQUENCY:ONE DOSE STAT;?
     Route: 040
     Dates: start: 20161113, end: 20161113
  3. MEROPENEM. [Concomitant]
     Active Substance: MEROPENEM
  4. PROPOFOL. [Concomitant]
     Active Substance: PROPOFOL
  5. OXYCODONE [Concomitant]
     Active Substance: OXYCODONE
  6. BUDESONIDE. [Concomitant]
     Active Substance: BUDESONIDE

REACTIONS (2)
  - Blood creatinine increased [None]
  - Dialysis [None]

NARRATIVE: CASE EVENT DATE: 20161115
